FAERS Safety Report 4612310-3 (Version None)
Quarter: 2005Q1

REPORT INFORMATION
  Report Type: 
  Country: None (occurrence: None)
  Receive Date: 20050316
  Receipt Date: 20050304
  Transmission Date: 20050727
  Serious: Yes (Other)
  Sender: FDA-Public Use
  Company Number: 212861

PATIENT
  Age: 47 Year
  Sex: Female
  Weight: 65.3 kg

DRUGS (5)
  1. XOLAIR [Suspect]
     Indication: ASTHMA
     Dosage: 150 MG, 1/MONTH
     Dates: start: 20031124, end: 20040514
  2. SINGULAIR [Suspect]
  3. ASACOL [Concomitant]
  4. CORTISONE ENEMA (CORTISONE ACETATE) [Concomitant]
  5. ADVAIR (SALMETEROL XINAFOATE, FLUTICASONE PROPIONATE) [Concomitant]

REACTIONS (2)
  - DRUG ERUPTION [None]
  - LEUKOCYTOCLASTIC VASCULITIS [None]
